FAERS Safety Report 10301597 (Version 6)
Quarter: 2014Q3

REPORT INFORMATION
  Report Type: Report from Study
  Country: US (occurrence: US)
  Receive Date: 20140714
  Receipt Date: 20140929
  Transmission Date: 20150326
  Serious: Yes (Hospitalization, Other)
  Sender: FDA-Public Use
  Company Number: US-BAYER-2014-095802

PATIENT
  Age: 58 Year
  Sex: Female
  Weight: 152 kg

DRUGS (7)
  1. WARFARIN [Suspect]
     Active Substance: WARFARIN
  2. ADEMPAS [Suspect]
     Active Substance: RIOCIGUAT
     Indication: PULMONARY ARTERIAL HYPERTENSION
     Dosage: 1 MG, TID
     Route: 048
     Dates: start: 20140630
  3. ADEMPAS [Suspect]
     Active Substance: RIOCIGUAT
     Indication: PULMONARY ARTERIAL HYPERTENSION
     Dosage: 0.5 MG, TID
     Route: 048
     Dates: start: 20140613
  4. ADEMPAS [Suspect]
     Active Substance: RIOCIGUAT
     Indication: PULMONARY ARTERIAL HYPERTENSION
     Dosage: 0.5 MG, TID
     Route: 048
  5. LETAIRIS [Concomitant]
     Active Substance: AMBRISENTAN
  6. ADEMPAS [Suspect]
     Active Substance: RIOCIGUAT
     Indication: PULMONARY ARTERIAL HYPERTENSION
     Dosage: 1 MG, TID
     Route: 048
     Dates: start: 20140613
  7. TYVASO [Suspect]
     Active Substance: TREPROSTINIL
     Indication: PULMONARY ARTERIAL HYPERTENSION
     Dosage: 18-54 MCG QID,
     Route: 055
     Dates: start: 20140722

REACTIONS (8)
  - Eructation [None]
  - Ulcer [None]
  - Rash pustular [None]
  - Haematochezia [Unknown]
  - Visual impairment [None]
  - Staphylococcal infection [None]
  - Haemoptysis [None]
  - Fatigue [None]

NARRATIVE: CASE EVENT DATE: 20140623
